FAERS Safety Report 6134549-0 (Version None)
Quarter: 2009Q1

REPORT INFORMATION
  Report Type: 
  Country: None (occurrence: None)
  Receive Date: 20090327
  Receipt Date: 20090324
  Transmission Date: 20090719
  Serious: Yes (Hospitalization)
  Sender: FDA-Public Use
  Company Number: PL-BRISTOL-MYERS SQUIBB COMPANY-14559348

PATIENT
  Age: 50 Year
  Sex: Female

DRUGS (2)
  1. ENTECAVIR [Suspect]
     Indication: HEPATITIS B
     Dosage: 2ND MONTH OF THERAPY
  2. ZEFIX [Concomitant]

REACTIONS (1)
  - COMA [None]
